FAERS Safety Report 25943439 (Version 1)
Quarter: 2025Q4

REPORT INFORMATION
  Report Type: Report from Study
  Country: KR (occurrence: KR)
  Receive Date: 20251021
  Receipt Date: 20251021
  Transmission Date: 20260117
  Serious: Yes (Other)
  Sender: ALEXION PHARMACEUTICALS
  Company Number: KR-AstraZeneca-CH-00816586A

PATIENT
  Sex: Male

DRUGS (2)
  1. OSIMERTINIB [Suspect]
     Active Substance: OSIMERTINIB
     Indication: Lung neoplasm malignant
     Dosage: 80 MILLIGRAM, QD
     Dates: start: 202412
  2. OSIMERTINIB [Suspect]
     Active Substance: OSIMERTINIB
     Indication: Intracranial mass

REACTIONS (8)
  - Erectile dysfunction [Not Recovered/Not Resolved]
  - Pruritus [Recovering/Resolving]
  - Nocturia [Not Recovered/Not Resolved]
  - Sleep disorder [Not Recovered/Not Resolved]
  - Wound [Recovering/Resolving]
  - Macule [Recovered/Resolved]
  - Nail disorder [Not Recovered/Not Resolved]
  - Diarrhoea [Not Recovered/Not Resolved]

NARRATIVE: CASE EVENT DATE: 20241201
